FAERS Safety Report 26194077 (Version 2)
Quarter: 2025Q4

REPORT INFORMATION
  Report Type: Spontaneous
  Country: EU (occurrence: EU)
  Receive Date: 20251224
  Receipt Date: 20251229
  Transmission Date: 20260117
  Serious: Yes (Life-Threatening, Hospitalization, Other)
  Sender: VERTEX
  Company Number: EU-VERTEX PHARMACEUTICALS-2025-021908

PATIENT
  Sex: Male

DRUGS (1)
  1. IVACAFTOR\LUMACAFTOR [Suspect]
     Active Substance: IVACAFTOR\LUMACAFTOR
     Indication: Cystic fibrosis
     Dosage: LUMACAFTOR/IVACAFTOR
     Route: 061

REACTIONS (10)
  - Bronchial obstruction [Recovered/Resolved]
  - Pulmonary necrosis [Recovered/Resolved]
  - Pneumonia necrotising [Unknown]
  - Bronchitis [Unknown]
  - General physical health deterioration [Recovering/Resolving]
  - Dehydration [Unknown]
  - Malnutrition [Unknown]
  - Psychomotor retardation [Recovering/Resolving]
  - Pica [Recovered/Resolved]
  - Haemoglobin decreased [Recovered/Resolved]
